FAERS Safety Report 9195121 (Version 1)
Quarter: 2013Q1

REPORT INFORMATION
  Report Type: Spontaneous
  Country: US (occurrence: US)
  Receive Date: 20130328
  Receipt Date: 20130328
  Transmission Date: 20140127
  Serious: No
  Sender: FDA-Public Use
  Company Number: US-ALLERGAN-1214657US

PATIENT
  Age: 70 Year
  Sex: Female

DRUGS (5)
  1. LATISSE 0.03% [Suspect]
     Indication: GROWTH OF EYELASHES
     Dosage: 2 GTT, QHS
     Route: 061
     Dates: start: 201207, end: 201210
  2. EVISTA [Concomitant]
     Indication: HYPOTHYROIDISM
     Dosage: 60 MG, UNK
     Route: 048
     Dates: start: 2002
  3. KLOR-CON M20 [Concomitant]
     Indication: LUNG DISORDER
     Dosage: UNK
     Route: 048
  4. PREDNISONE [Concomitant]
     Indication: LUNG DISORDER
     Dosage: 5 MG, UNK
     Route: 048
  5. LIPITOR [Concomitant]
     Indication: BLOOD CHOLESTEROL INCREASED
     Dosage: 20 MG, UNK
     Route: 048

REACTIONS (1)
  - Drug ineffective [Unknown]
